FAERS Safety Report 19086554 (Version 2)
Quarter: 2024Q2

REPORT INFORMATION
  Report Type: Spontaneous
  Country: CA (occurrence: None)
  Receive Date: 20210402
  Receipt Date: 20240502
  Transmission Date: 20240716
  Serious: Yes (Death)
  Sender: FDA-Public Use
  Company Number: 2021A247781

PATIENT
  Age: 72 Year
  Sex: Female

DRUGS (7)
  1. QUETIAPINE FUMARATE [Suspect]
     Active Substance: QUETIAPINE FUMARATE
     Indication: Product used for unknown indication
     Dosage: UNKNOWN
  2. QUETIAPINE FUMARATE [Suspect]
     Active Substance: QUETIAPINE FUMARATE
     Indication: Product used for unknown indication
     Dosage: 100.0MG UNKNOWN
  3. OLANZAPINE [Suspect]
     Active Substance: OLANZAPINE
     Indication: Product used for unknown indication
     Dosage: 1.25MG UNKNOWN
  4. REXULTI [Suspect]
     Active Substance: BREXPIPRAZOLE
     Indication: Product used for unknown indication
     Dosage: 0.5MG UNKNOWN
  5. REXULTI [Suspect]
     Active Substance: BREXPIPRAZOLE
     Indication: Dementia
     Dosage: 0.5MG UNKNOWN
  6. REXULTI [Suspect]
     Active Substance: BREXPIPRAZOLE
     Indication: Product used for unknown indication
     Dosage: 0.25MG UNKNOWN
  7. REXULTI [Suspect]
     Active Substance: BREXPIPRAZOLE
     Indication: Dementia
     Dosage: 0.25MG UNKNOWN

REACTIONS (1)
  - Discoloured vomit [Fatal]
